FAERS Safety Report 8780575 (Version 2)
Quarter: 2012Q4

REPORT INFORMATION
  Report Type: 
  Country: US (occurrence: US)
  Receive Date: 20120913
  Receipt Date: 20121129
  Transmission Date: 20130627
  Serious: No
  Sender: FDA-Public Use
  Company Number: US-PFIZER INC-2011136883

PATIENT
  Age: 61 Year
  Sex: Male
  Weight: 69.39 kg

DRUGS (5)
  1. SUTENT [Suspect]
     Indication: METASTATIC RENAL CARCINOMA
     Dosage: 50 mg, 1x/day 28 days on treatment followed by 2 weeks off
     Dates: start: 201003
  2. SUTENT [Suspect]
     Dosage: 37.5 mg, 1x/day (12.5mg X 3 capsules) 28 days on treatment followed by 2 weeks off
  3. SUTENT [Suspect]
     Dosage: 50 mg, 1x/day (28 days on treatment followed by 2 weeks off)
     Dates: end: 201209
  4. AMLODIPINE [Concomitant]
     Indication: BLOOD PRESSURE HIGH
     Dosage: 10 mg, daily
  5. LABETALOL [Concomitant]
     Indication: BLOOD PRESSURE HIGH
     Dosage: 200 mg (two tablets), 2x/day
     Route: 048

REACTIONS (14)
  - Ligament sprain [Unknown]
  - Gastrooesophageal reflux disease [Recovered/Resolved]
  - Epistaxis [Recovered/Resolved]
  - Rash [Unknown]
  - Feeling abnormal [Recovered/Resolved]
  - Nausea [Recovered/Resolved]
  - Diarrhoea [Recovered/Resolved]
  - Sleep disorder [Recovered/Resolved]
  - Dry skin [Unknown]
  - Hair colour changes [Unknown]
  - Asthenia [Recovered/Resolved]
  - Fatigue [Recovered/Resolved]
  - Disease progression [Unknown]
  - Renal cancer metastatic [Unknown]
